FAERS Safety Report 6667745-4 (Version None)
Quarter: 2010Q2

REPORT INFORMATION
  Report Type: 
  Country: None (occurrence: None)
  Receive Date: 20100405
  Receipt Date: 20100329
  Transmission Date: 20101027
  Serious: Yes (Hospitalization, Other)
  Sender: FDA-Public Use
  Company Number: US-BAYER-201013568BCC

PATIENT
  Age: 74 Year
  Sex: Female

DRUGS (19)
  1. ASPIRIN [Suspect]
     Indication: DRUG USE FOR UNKNOWN INDICATION
     Dosage: TOTAL DAILY DOSE: 325 MG  UNIT DOSE: 325 MG
  2. PLAVIX [Suspect]
     Indication: DRUG USE FOR UNKNOWN INDICATION
     Dosage: TOTAL DAILY DOSE: 75 MG  UNIT DOSE: 75 MG
  3. DASATINIB [Suspect]
     Indication: CHRONIC MYELOID LEUKAEMIA
     Dosage: AS USED: 40 MG  UNIT DOSE: 40 MG
     Dates: start: 20050829
  4. MEGACE [Concomitant]
  5. VITAMIN D [Concomitant]
  6. THYROID SUPPLEMENT [Concomitant]
  7. LIPITOR [Concomitant]
  8. BACITRACIN TOPICAL OINTMENT [Concomitant]
  9. CLONIDINE [Concomitant]
  10. OSCAL D [Concomitant]
  11. PRANDIN [Concomitant]
  12. NOVOLOG [Concomitant]
  13. FERROUS SULFATE TAB [Concomitant]
  14. COREG [Concomitant]
  15. LYRICA [Concomitant]
  16. LASIX [Concomitant]
  17. AMLODIPINE [Concomitant]
  18. CALCIUM [Concomitant]
  19. VITAMIN B-12 [Concomitant]

REACTIONS (17)
  - ABDOMINAL PAIN [None]
  - ANAEMIA [None]
  - ASTHENIA [None]
  - BLOOD CREATININE INCREASED [None]
  - CHILLS [None]
  - DEHYDRATION [None]
  - ELECTROLYTE IMBALANCE [None]
  - ESCHERICHIA URINARY TRACT INFECTION [None]
  - GASTROINTESTINAL HAEMORRHAGE [None]
  - HAEMATOCRIT DECREASED [None]
  - HAEMOGLOBIN DECREASED [None]
  - HYPOVOLAEMIA [None]
  - NAUSEA [None]
  - PYREXIA [None]
  - RECTAL HAEMORRHAGE [None]
  - RENAL FAILURE ACUTE [None]
  - TREMOR [None]
